FAERS Safety Report 21037124 (Version 1)
Quarter: 2022Q3

REPORT INFORMATION
  Report Type: Report from Study
  Country: US (occurrence: US)
  Receive Date: 20220703
  Receipt Date: 20220703
  Transmission Date: 20221027
  Serious: Yes (Other)
  Sender: FDA-Public Use
  Company Number: US-ASTELLAS-2021US002679

PATIENT

DRUGS (2)
  1. BENDAMUSTINE HYDROCHLORIDE [Suspect]
     Active Substance: BENDAMUSTINE HYDROCHLORIDE
     Indication: Non-Hodgkin^s lymphoma unspecified histology indolent
     Dosage: (ON DAYS 1 AND 2 OF EACH 28 DAYS CYCLE)
     Route: 042
  2. OFATUMUMAB [Suspect]
     Active Substance: OFATUMUMAB
     Indication: Non-Hodgkin^s lymphoma unspecified histology indolent
     Dosage: (ON DAY 1 OF EACH CYCLE)
     Route: 042

REACTIONS (1)
  - Infusion related reaction [Unknown]
